FAERS Safety Report 14044785 (Version 1)
Quarter: 2017Q4

REPORT INFORMATION
  Report Type: Spontaneous
  Country: US (occurrence: US)
  Receive Date: 20171005
  Receipt Date: 20171005
  Transmission Date: 20180321
  Serious: No
  Sender: FDA-Public Use
  Company Number: US-INDIVIOR LIMITED-INDV-100581-2017

PATIENT
  Age: 36 Year
  Sex: Female

DRUGS (3)
  1. SUBOXONE [Suspect]
     Active Substance: BUPRENORPHINE HYDROCHLORIDE\NALOXONE HYDROCHLORIDE
     Dosage: 2MG, THREE FILMS PER DAY
     Route: 060
     Dates: start: 20170411
  2. SUBOXONE [Suspect]
     Active Substance: BUPRENORPHINE HYDROCHLORIDE\NALOXONE HYDROCHLORIDE
     Indication: DRUG USE DISORDER
     Dosage: 2MG, UNK
     Route: 060
  3. HYDROCODONE [Suspect]
     Active Substance: HYDROCODONE
     Indication: PAIN
     Dosage: 90MG, UNK
     Route: 065

REACTIONS (6)
  - Nausea [Unknown]
  - Drug abuse [Unknown]
  - Cystitis interstitial [Unknown]
  - Drug withdrawal syndrome [Unknown]
  - Back pain [Unknown]
  - Drug dependence [Unknown]

NARRATIVE: CASE EVENT DATE: 20170412
